FAERS Safety Report 10291251 (Version 1)
Quarter: 2014Q3

REPORT INFORMATION
  Report Type: Spontaneous
  Country: GB (occurrence: None)
  Receive Date: 20140708
  Receipt Date: 20140708
  Transmission Date: 20150326
  Serious: Yes (Life-Threatening, Hospitalization)
  Sender: FDA-Public Use
  Company Number: AUR-APL-2014-07061

PATIENT
  Age: 32 Year
  Sex: Male

DRUGS (4)
  1. SIMVASTATIN. [Suspect]
     Active Substance: SIMVASTATIN
     Indication: PRODUCT USED FOR UNKNOWN INDICATION
     Route: 048
  2. DILTIAZEM [Suspect]
     Active Substance: DILTIAZEM
     Indication: PRODUCT USED FOR UNKNOWN INDICATION
     Route: 048
  3. BISOPROLOL [Suspect]
     Active Substance: BISOPROLOL
     Indication: PRODUCT USED FOR UNKNOWN INDICATION
     Route: 048
  4. MIRTAZAPINE (MIRTAZAPINE) [Concomitant]
     Active Substance: MIRTAZAPINE

REACTIONS (15)
  - Atrioventricular block complete [None]
  - Rhabdomyolysis [None]
  - Respiratory acidosis [None]
  - Hypotension [None]
  - Intentional overdose [None]
  - Hypothermia [None]
  - Continuous haemodiafiltration [None]
  - Muscular weakness [None]
  - Metabolic acidosis [None]
  - Oliguria [None]
  - Cardiac arrest [None]
  - Myopathy [None]
  - Hypoxia [None]
  - Hypokalaemia [None]
  - Blood creatinine increased [None]
